FAERS Safety Report 7340227-2 (Version None)
Quarter: 2011Q1

REPORT INFORMATION
  Report Type: 
  Country: None (occurrence: None)
  Receive Date: 20110309
  Receipt Date: 20110215
  Transmission Date: 20110831
  Serious: No
  Sender: FDA-Public Use
  Company Number: JP-JNJFOC-20110201577

PATIENT
  Sex: Female

DRUGS (5)
  1. CRESTOR [Suspect]
     Indication: HYPERLIPIDAEMIA
     Route: 048
  2. MEDICON [Suspect]
     Indication: BRONCHITIS
     Route: 048
  3. CLARITHROMYCIN [Suspect]
     Indication: MYCOBACTERIUM AVIUM COMPLEX INFECTION
     Route: 048
  4. CRAVIT [Suspect]
     Indication: BRONCHITIS
     Route: 048
  5. BASEN [Concomitant]
     Indication: DIABETES MELLITUS
     Route: 048

REACTIONS (1)
  - PYREXIA [None]
